FAERS Safety Report 15916128 (Version 2)
Quarter: 2019Q1

REPORT INFORMATION
  Report Type: Report from Study
  Country: MX (occurrence: MX)
  Receive Date: 20190204
  Receipt Date: 20190218
  Transmission Date: 20190417
  Serious: Yes (Other)
  Sender: FDA-Public Use
  Company Number: PHHY2019MX025221

PATIENT
  Sex: Female
  Weight: 50 kg

DRUGS (1)
  1. CO-DIOVAN [Suspect]
     Active Substance: HYDROCHLOROTHIAZIDE\VALSARTAN
     Indication: HYPERTENSION
     Dosage: 1 DF,(HYDROCHLROTHIAZIDE 12.5 MG VALSARTAN 160 MG) QD
     Route: 048
     Dates: start: 200610

REACTIONS (3)
  - Diabetes mellitus [Recovering/Resolving]
  - Blood pressure increased [Recovered/Resolved]
  - Feeling abnormal [Unknown]

NARRATIVE: CASE EVENT DATE: 2009
